FAERS Safety Report 7727163-4 (Version None)
Quarter: 2011Q3

REPORT INFORMATION
  Report Type: 
  Country: None (occurrence: None)
  Receive Date: 20110902
  Receipt Date: 20110824
  Transmission Date: 20111222
  Serious: Yes (Hospitalization, Other)
  Sender: FDA-Public Use
  Company Number: US-ELI_LILLY_AND_COMPANY-US201104004718

PATIENT
  Sex: Female

DRUGS (3)
  1. HUMATROPE [Suspect]
     Indication: BLOOD GROWTH HORMONE
     Dosage: UNK, UNKNOWN
     Route: 065
     Dates: start: 20100716, end: 20100826
  2. DEXAMETHASONE [Concomitant]
     Dosage: UNK, UNKNOWN
  3. HUMATROPE [Suspect]
     Dosage: UNK, UNKNOWN
     Dates: start: 20110803

REACTIONS (5)
  - FOREIGN BODY ASPIRATION [None]
  - FALL [None]
  - PULMONARY FIBROSIS [None]
  - PNEUMONIA [None]
  - PROCEDURAL COMPLICATION [None]
